FAERS Safety Report 8341991-6 (Version None)
Quarter: 2012Q1

REPORT INFORMATION
  Report Type: 
  Country: None (occurrence: None)
  Receive Date: 20120330
  Receipt Date: 20021212
  Transmission Date: 20120608
  Serious: Yes (Hospitalization)
  Sender: FDA-Public Use
  Company Number: PHEH2002US10463

PATIENT
  Age: 72 Year
  Sex: Male

DRUGS (2)
  1. ZYPREXA [Concomitant]
  2. EXELON [Suspect]
     Dosage: 3 MG, BID
     Dates: start: 20010309

REACTIONS (2)
  - HEMIPARESIS [None]
  - TRANSIENT ISCHAEMIC ATTACK [None]
